FAERS Safety Report 6697531-0 (Version None)
Quarter: 2010Q2

REPORT INFORMATION
  Report Type: 
  Country: None (occurrence: None)
  Receive Date: 20100422
  Receipt Date: 20100413
  Transmission Date: 20101027
  Serious: Yes (Hospitalization)
  Sender: FDA-Public Use
  Company Number: 2010SP000770

PATIENT
  Age: 44 Year
  Sex: Female
  Weight: 98 kg

DRUGS (10)
  1. CICLESONIDE HFA [Suspect]
     Indication: RHINITIS ALLERGIC
     Dosage: 80 UG; INHALATION
     Route: 055
     Dates: start: 20091009, end: 20100401
  2. CICLESONIDE HFA [Suspect]
     Indication: RHINITIS PERENNIAL
     Dosage: 80 UG; INHALATION
     Route: 055
     Dates: start: 20091009, end: 20100401
  3. LEVOTHYROXINE [Concomitant]
  4. SIMVASTATIN [Concomitant]
  5. EPIPEN /00003901/ [Concomitant]
  6. IBUPROFEN [Concomitant]
  7. ALBUTEROL [Concomitant]
  8. ROBITUSSIN /00048001/ [Concomitant]
  9. HYDROCORTISONE [Concomitant]
  10. SINGLE BLIND THERAPY [Concomitant]

REACTIONS (1)
  - MENORRHAGIA [None]
